FAERS Safety Report 13954638 (Version 1)
Quarter: 2017Q3

REPORT INFORMATION
  Report Type: Spontaneous
  Country: US (occurrence: US)
  Receive Date: 20170910
  Receipt Date: 20170910
  Transmission Date: 20171128
  Serious: Yes (Other)
  Sender: FDA-Public Use
  Company Number: None

PATIENT
  Age: 57 Year
  Sex: Female
  Weight: 60.75 kg

DRUGS (8)
  1. SERTRALINE [Concomitant]
     Active Substance: SERTRALINE HYDROCHLORIDE
  2. MULTI-VITAMIN [Concomitant]
     Active Substance: .ALPHA.-TOCOPHEROL ACETATE, DL-\ASCORBIC ACID\CYANOCOBALAMIN\FLUORIDE ION\FOLIC ACID\NIACIN\PYRIDOXINE\RIBOFLAVIN\THIAMINE\VITAMIN A\VITAMIN D
  3. LORATADINE. [Concomitant]
     Active Substance: LORATADINE
  4. CENTRUM SILVER FOR WOMEN [Concomitant]
     Active Substance: MINERALS\VITAMINS
  5. TRAZEDONE [Concomitant]
  6. BUPROPRION [Concomitant]
     Active Substance: BUPROPION
  7. CERAMIDE LIFT AND FIRM DAY BROAD SPECTRUM SUNSCREEN SPF 30 [Suspect]
     Active Substance: AVOBENZONE\OCTINOXATE\OCTISALATE\OCTOCRYLENE\OXYBENZONE
     Indication: SKIN WRINKLING
     Route: 061
     Dates: start: 20170804, end: 20170818
  8. NEXAPRIN [Concomitant]

REACTIONS (7)
  - Blister [None]
  - Alopecia [None]
  - Actinic keratosis [None]
  - Skin irritation [None]
  - Pallor [None]
  - Erythema [None]
  - Skin swelling [None]

NARRATIVE: CASE EVENT DATE: 20170901
